FAERS Safety Report 5820851-6 (Version None)
Quarter: 2008Q3

REPORT INFORMATION
  Report Type: 
  Country: None (occurrence: None)
  Receive Date: 20080717
  Receipt Date: 20080707
  Transmission Date: 20090109
  Serious: Yes (Hospitalization)
  Sender: FDA-Public Use
  Company Number: 2008BI014535

PATIENT
  Age: 48 Year
  Sex: Female
  Weight: 104.3273 kg

DRUGS (3)
  1. AVONEX [Suspect]
     Indication: MULTIPLE SCLEROSIS
     Dosage: 30 UG;QW;IM
     Route: 030
     Dates: start: 20071128
  2. LAMICTAL [Concomitant]
  3. PAXIL [Concomitant]

REACTIONS (5)
  - CELLULITIS STAPHYLOCOCCAL [None]
  - CONSTIPATION [None]
  - CYSTOCELE REPAIR [None]
  - PRURITUS [None]
  - RECTOCELE REPAIR [None]
